FAERS Safety Report 15476018 (Version 2)
Quarter: 2018Q4

REPORT INFORMATION
  Report Type: Spontaneous
  Country: SE (occurrence: SE)
  Receive Date: 20181009
  Receipt Date: 20181101
  Transmission Date: 20190205
  Serious: Yes (Death, Hospitalization, Other)
  Sender: FDA-Public Use
  Company Number: PHHY2018SE118342

PATIENT
  Age: 78 Year
  Sex: Male
  Weight: 95 kg

DRUGS (3)
  1. GABAPENTIN 1A FARMA [Suspect]
     Active Substance: GABAPENTIN
     Indication: SPINAL PAIN
     Dosage: 200 MG, QD (THIRD AND FOURTH DAY)
     Route: 065
     Dates: start: 20180531
  2. GABAPENTIN 1A FARMA [Suspect]
     Active Substance: GABAPENTIN
     Indication: SPINAL CORD COMPRESSION
     Dosage: 100 MG, QD(FIRST AND SECOND DAY)
     Route: 065
     Dates: start: 20180529
  3. GABAPENTIN 1A FARMA [Suspect]
     Active Substance: GABAPENTIN
     Indication: NEURALGIA
     Dosage: 300 MG, QD (FIFTH AND SIXTH DAY)
     Route: 065
     Dates: start: 20180602, end: 20180603

REACTIONS (8)
  - Infection [Recovered/Resolved]
  - Peripheral swelling [Unknown]
  - Pyrexia [Unknown]
  - C-reactive protein increased [Unknown]
  - Gout [Unknown]
  - Sepsis [Unknown]
  - Death [Fatal]
  - Joint swelling [Unknown]

NARRATIVE: CASE EVENT DATE: 20180601
